FAERS Safety Report 11003501 (Version 1)
Quarter: 2015Q2

REPORT INFORMATION
  Report Type: Spontaneous
  Country: MX (occurrence: MX)
  Receive Date: 20150409
  Receipt Date: 20150409
  Transmission Date: 20150821
  Serious: Yes (Hospitalization)
  Sender: FDA-Public Use
  Company Number: MX-JNJFOC-20150318878

PATIENT
  Age: 4 Year
  Sex: Male
  Weight: 17 kg

DRUGS (2)
  1. MOTRIN [Suspect]
     Active Substance: IBUPROFEN
     Indication: INFLUENZA
     Route: 048
     Dates: start: 20100121
  2. MOTRIN [Suspect]
     Active Substance: IBUPROFEN
     Indication: PYREXIA
     Route: 048
     Dates: start: 20100121

REACTIONS (8)
  - Urinary tract infection [Unknown]
  - Rash erythematous [Unknown]
  - Swelling face [Unknown]
  - Accidental exposure to product [Unknown]
  - Diarrhoea [Unknown]
  - Product use issue [Unknown]
  - Extra dose administered [Unknown]
  - Diarrhoea haemorrhagic [Recovered/Resolved]

NARRATIVE: CASE EVENT DATE: 20100122
